FAERS Safety Report 6760372-X (Version None)
Quarter: 2010Q2

REPORT INFORMATION
  Report Type: 
  Country: None (occurrence: None)
  Receive Date: 20100608
  Receipt Date: 20100601
  Transmission Date: 20101027
  Serious: No
  Sender: FDA-Public Use
  Company Number: GR-ASTRAZENECA-2010SE25341

PATIENT
  Age: 38 Year
  Sex: Male

DRUGS (3)
  1. SEROQUEL XR [Suspect]
     Indication: BIPOLAR DISORDER
     Route: 048
     Dates: start: 20090101
  2. KEPPRA [Concomitant]
     Indication: BIPOLAR DISORDER
     Route: 048
     Dates: start: 20090101
  3. CITALOPRAM HYDROBROMIDE [Concomitant]
     Indication: BIPOLAR DISORDER
     Route: 048
     Dates: start: 20090101

REACTIONS (1)
  - THROMBOCYTOPENIA [None]
